FAERS Safety Report 4322641-2 (Version None)
Quarter: 2004Q1

REPORT INFORMATION
  Report Type: 
  Country: None (occurrence: None)
  Receive Date: 20040324
  Receipt Date: 20031202
  Transmission Date: 20041129
  Serious: No
  Sender: FDA-Public Use
  Company Number: US-BRISTOL-MYERS SQUIBB COMPANY-12447728

PATIENT
  Age: 47 Year
  Sex: Male

DRUGS (3)
  1. REYATAZ [Suspect]
     Indication: HIV INFECTION
     Route: 048
     Dates: start: 20031027
  2. PLENDIL [Suspect]
     Indication: HYPERTENSION
  3. TRIZIVIR [Concomitant]

REACTIONS (2)
  - JOINT SWELLING [None]
  - OEDEMA [None]
